FAERS Safety Report 6467973-7 (Version None)
Quarter: 2009Q4

REPORT INFORMATION
  Report Type: 
  Country: None (occurrence: None)
  Receive Date: 20091202
  Receipt Date: 20091123
  Transmission Date: 20100525
  Serious: Yes (Other)
  Sender: FDA-Public Use
  Company Number: GB-BAUSCH-2009BL006219

PATIENT
  Age: 46 Year
  Sex: Female
  Weight: 78 kg

DRUGS (5)
  1. PREDNISOLONE [Suspect]
     Indication: RENAL TRANSPLANT
  2. NEORAL [Suspect]
     Indication: RENAL TRANSPLANT
     Route: 048
     Dates: start: 20001010
  3. ATENOLOL [Concomitant]
     Indication: HYPERTENSION
     Route: 048
  4. AZATHIOPRINE [Concomitant]
     Indication: RENAL TRANSPLANT
     Route: 048
  5. DOXAZOSIN [Concomitant]
     Indication: HYPERTENSION
     Route: 048

REACTIONS (2)
  - BENIGN INTRACRANIAL HYPERTENSION [None]
  - HEADACHE [None]
